FAERS Safety Report 5314284-9 (Version None)
Quarter: 2007Q2

REPORT INFORMATION
  Report Type: 
  Country: None (occurrence: None)
  Receive Date: 20070425
  Receipt Date: 20070411
  Transmission Date: 20071010
  Serious: Yes (Hospitalization)
  Sender: FDA-Public Use
  Company Number: 012398

PATIENT
  Age: 33 Year
  Sex: Female
  Weight: 70.7 kg

DRUGS (2)
  1. KARIVA [Suspect]
     Indication: ORAL CONTRACEPTION
     Dosage: 1 TABLET, QD, ORAL
     Route: 048
     Dates: start: 20060501, end: 20060922
  2. BENICAR [Concomitant]

REACTIONS (6)
  - ASTHMA [None]
  - LUNG DISORDER [None]
  - PAIN IN EXTREMITY [None]
  - PULMONARY EMBOLISM [None]
  - SCAR [None]
  - THROMBOSIS [None]
